FAERS Safety Report 4742555-3 (Version None)
Quarter: 2005Q3

REPORT INFORMATION
  Report Type: 
  Country: None (occurrence: None)
  Receive Date: 20050808
  Receipt Date: 20050726
  Transmission Date: 20060218
  Serious: Yes (Hospitalization)
  Sender: FDA-Public Use
  Company Number: USA0507103812

PATIENT
  Age: 65 Year
  Sex: Male
  Weight: 136 kg

DRUGS (7)
  1. CYMBALTA [Suspect]
     Indication: DEPRESSION
     Dosage: 30 MG
     Dates: start: 20050723, end: 20050723
  2. TOPROL-XL [Concomitant]
  3. LOTREL [Concomitant]
  4. DIOVAN HCT [Concomitant]
  5. NEURONTIN [Concomitant]
  6. LEVOXYL [Concomitant]
  7. LIPITOR [Concomitant]

REACTIONS (3)
  - ATRIAL FIBRILLATION [None]
  - DRUG INEFFECTIVE [None]
  - DRUG INTERACTION [None]
